FAERS Safety Report 15587290 (Version 3)
Quarter: 2018Q4

REPORT INFORMATION
  Report Type: Spontaneous
  Country: US (occurrence: US)
  Receive Date: 20181105
  Receipt Date: 20181226
  Transmission Date: 20190205
  Serious: Yes (Hospitalization, Other)
  Sender: FDA-Public Use
  Company Number: US-UNITED THERAPEUTICS-UNT-2018-018017

PATIENT
  Age: 63 Year
  Sex: Male
  Weight: 92.7 kg

DRUGS (2)
  1. SILDENAFIL. [Concomitant]
     Active Substance: SILDENAFIL
     Indication: PRODUCT USED FOR UNKNOWN INDICATION
     Route: 065
  2. REMODULIN [Suspect]
     Active Substance: TREPROSTINIL
     Indication: PULMONARY ARTERIAL HYPERTENSION
     Dosage: 0.0322 ?G/KG, CONTINUING
     Route: 058
     Dates: start: 20180314, end: 2018

REACTIONS (2)
  - Pulmonary air leakage [Unknown]
  - Pneumothorax [Unknown]

NARRATIVE: CASE EVENT DATE: 20181010
